FAERS Safety Report 10024546 (Version 2)
Quarter: 2014Q1

REPORT INFORMATION
  Report Type: Report from Study
  Country: US (occurrence: US)
  Receive Date: 20140320
  Receipt Date: 20140320
  Transmission Date: 20141002
  Serious: Yes (Other)
  Sender: FDA-Public Use
  Company Number: PHEH2014US002351

PATIENT
  Age: 18 Year
  Sex: Female
  Weight: 57 kg

DRUGS (5)
  1. TOBI PODHALER [Suspect]
     Indication: CYSTIC FIBROSIS
     Dosage: 112 MG, BID
     Route: 055
     Dates: start: 20140119
  2. HYPERTONIC SALINE SOLUTION [Concomitant]
     Dosage: UNK
  3. ALBUTEROL [Concomitant]
     Dosage: UNK
  4. PULMOZYME [Concomitant]
     Dosage: UNK
  5. ADVAIR [Concomitant]
     Dosage: UNK

REACTIONS (3)
  - Asthma [Unknown]
  - Cough [Recovering/Resolving]
  - Hypersensitivity [Unknown]
